FAERS Safety Report 19724055 (Version 2)
Quarter: 2021Q3

REPORT INFORMATION
  Report Type: Spontaneous
  Country: US (occurrence: US)
  Receive Date: 20210820
  Receipt Date: 20210825
  Transmission Date: 20211014
  Serious: Yes (Death)
  Sender: FDA-Public Use
  Company Number: US-ROCHE-2893172

PATIENT
  Age: 69 Year
  Sex: Male
  Weight: 102.15 kg

DRUGS (1)
  1. LUCENTIS [Suspect]
     Active Substance: RANIBIZUMAB
     Indication: CATARACT OPERATION
     Route: 065

REACTIONS (4)
  - Cardiac failure congestive [Fatal]
  - Asthenia [Recovered/Resolved]
  - Pyrexia [Recovered/Resolved]
  - Off label use [Unknown]

NARRATIVE: CASE EVENT DATE: 20210423
